FAERS Safety Report 4674106-6 (Version None)
Quarter: 2005Q2

REPORT INFORMATION
  Report Type: 
  Country: None (occurrence: None)
  Receive Date: 20050524
  Receipt Date: 20050524
  Transmission Date: 20051028
  Serious: No
  Sender: FDA-Public Use
  Company Number: None

PATIENT
  Age: 56 Year
  Sex: Male

DRUGS (2)
  1. IBUPROFEN [Suspect]
     Indication: PSORIATIC ARTHROPATHY
  2. METHOTREXATE [Suspect]

REACTIONS (13)
  - ABASIA [None]
  - ABNORMAL BEHAVIOUR [None]
  - ASTHENIA [None]
  - DIARRHOEA [None]
  - DIZZINESS [None]
  - DIZZINESS POSTURAL [None]
  - FAECAL INCONTINENCE [None]
  - FAECES DISCOLOURED [None]
  - FALL [None]
  - GASTRIC ULCER [None]
  - HAEMATOCRIT DECREASED [None]
  - HAEMORRHAGE [None]
  - URINARY INCONTINENCE [None]
